FAERS Safety Report 16568216 (Version 2)
Quarter: 2019Q3

REPORT INFORMATION
  Report Type: Spontaneous
  Country: DE (occurrence: DE)
  Receive Date: 20190712
  Receipt Date: 20190718
  Transmission Date: 20191004
  Serious: Yes (Other)
  Sender: FDA-Public Use
  Company Number: DE-OTSUKA-2019_025542

PATIENT
  Age: 43 Year
  Sex: Male
  Weight: 84 kg

DRUGS (2)
  1. ABILIFY [Suspect]
     Active Substance: ARIPIPRAZOLE
     Indication: ATTENTION DEFICIT/HYPERACTIVITY DISORDER
  2. ABILIFY [Suspect]
     Active Substance: ARIPIPRAZOLE
     Indication: HALLUCINATION, AUDITORY
     Dosage: 5 MG, QD
     Route: 048
     Dates: start: 20190626

REACTIONS (6)
  - Syncope [Recovered/Resolved]
  - Off label use [Unknown]
  - Somnolence [Recovered/Resolved]
  - Amnesia [Recovered/Resolved]
  - Paraesthesia [Recovered/Resolved]
  - Hypoaesthesia [Recovered/Resolved]

NARRATIVE: CASE EVENT DATE: 20190626
